FAERS Safety Report 10087207 (Version 3)
Quarter: 2014Q2

REPORT INFORMATION
  Report Type: Spontaneous
  Country: US (occurrence: US)
  Receive Date: 20140418
  Receipt Date: 20140507
  Transmission Date: 20141212
  Serious: Yes (Hospitalization)
  Sender: FDA-Public Use
  Company Number: US-ACTELION-A-NJ2014-96679

PATIENT
  Age: 50 Year
  Sex: Male

DRUGS (3)
  1. TRACLEER [Suspect]
     Indication: PULMONARY ARTERIAL HYPERTENSION
     Route: 048
  2. RIOCIGUAT [Concomitant]
  3. XARELTO [Concomitant]

REACTIONS (7)
  - Large intestinal obstruction [Unknown]
  - Abdominal distension [Unknown]
  - Vomiting [Unknown]
  - Colostomy [Unknown]
  - Influenza like illness [Unknown]
  - Dyspnoea [Unknown]
  - Abdominal pain [Unknown]
